FAERS Safety Report 9593858 (Version 2)
Quarter: 2013Q4

REPORT INFORMATION
  Report Type: Spontaneous
  Country: US (occurrence: US)
  Receive Date: 20131004
  Receipt Date: 20131004
  Transmission Date: 20140711
  Serious: No
  Sender: FDA-Public Use
  Company Number: US-PURDUE-USA-2012-0090471

PATIENT
  Age: 42 Year
  Sex: Female
  Weight: 75.74 kg

DRUGS (5)
  1. BUTRANS [Suspect]
     Indication: INTERVERTEBRAL DISC DEGENERATION
     Dosage: 20 MCG/HR, UNK
     Route: 062
     Dates: start: 20110505
  2. AMBIEN CR [Concomitant]
     Indication: INSOMNIA
     Dosage: 12.5 MG, UNK
     Dates: start: 20060905
  3. TOPAMAX [Concomitant]
     Indication: MIGRAINE
     Dosage: 100 MG, UNK
     Dates: start: 20040508
  4. CITALOPRAM [Concomitant]
     Indication: ANXIETY
     Dosage: 40 MG, UNK
  5. CITALOPRAM [Concomitant]
     Indication: DEPRESSION

REACTIONS (6)
  - Wrong technique in drug usage process [Unknown]
  - Application site rash [Unknown]
  - Application site dermatitis [Not Recovered/Not Resolved]
  - Application site erythema [Unknown]
  - Application site pain [Unknown]
  - Application site hypersensitivity [Not Recovered/Not Resolved]
